FAERS Safety Report 11469081 (Version 2)
Quarter: 2015Q3

REPORT INFORMATION
  Report Type: Spontaneous
  Country: US (occurrence: US)
  Receive Date: 20150908
  Receipt Date: 20150921
  Transmission Date: 20151125
  Serious: No
  Sender: FDA-Public Use
  Company Number: US-GLAXOSMITHKLINE-US2015GSK116391

PATIENT
  Sex: Male

DRUGS (1)
  1. OMEGA-3-ACID ETHYL ESTERS CAPSULE [Suspect]
     Active Substance: OMEGA-3-ACID ETHYL ESTERS
     Indication: PRODUCT USED FOR UNKNOWN INDICATION
     Dosage: UNK

REACTIONS (5)
  - Gastrooesophageal reflux disease [Recovered/Resolved]
  - Eructation [Recovered/Resolved]
  - Product substitution issue [Unknown]
  - Dysgeusia [Recovered/Resolved]
  - Oesophageal pain [Recovered/Resolved]
